APPROVED DRUG PRODUCT: PROPAFENONE HYDROCHLORIDE
Active Ingredient: PROPAFENONE HYDROCHLORIDE
Strength: 425MG
Dosage Form/Route: CAPSULE, EXTENDED RELEASE;ORAL
Application: A214184 | Product #003 | TE Code: AB
Applicant: ZYDUS LIFESCIENCES GLOBAL FZE
Approved: Apr 21, 2021 | RLD: No | RS: No | Type: RX